FAERS Safety Report 26000886 (Version 1)
Quarter: 2025Q4

REPORT INFORMATION
  Report Type: Spontaneous
  Country: EU (occurrence: EU)
  Receive Date: 20251105
  Receipt Date: 20251105
  Transmission Date: 20260117
  Serious: Yes (Other)
  Sender: BRISTOL-MYERS SQUIBB COMPANY
  Company Number: EU-ABBVIE-6524155

PATIENT
  Age: 76 Year
  Sex: Male

DRUGS (3)
  1. APIXABAN [Suspect]
     Active Substance: APIXABAN
     Indication: Product used for unknown indication
  2. RINVOQ [Suspect]
     Active Substance: UPADACITINIB
     Indication: Colitis
     Route: 048
     Dates: start: 202509
  3. RINVOQ [Suspect]
     Active Substance: UPADACITINIB
     Dosage: LAST ADMIN DATE:2025
     Route: 048
     Dates: start: 202412, end: 2025

REACTIONS (8)
  - Pulmonary embolism [Unknown]
  - Urinary retention [Unknown]
  - Pyelonephritis [Unknown]
  - Anal incontinence [Unknown]
  - Diarrhoea [Unknown]
  - Cardiac disorder [Unknown]
  - Infection susceptibility increased [Unknown]
  - Weight decreased [Unknown]

NARRATIVE: CASE EVENT DATE: 20250101
